FAERS Safety Report 19256469 (Version 1)
Quarter: 2021Q2

REPORT INFORMATION
  Report Type: Report from Study
  Country: BR (occurrence: BR)
  Receive Date: 20210513
  Receipt Date: 20210513
  Transmission Date: 20210717
  Serious: Yes (Other)
  Sender: FDA-Public Use
  Company Number: NVSC2021BR105080

PATIENT
  Sex: Male

DRUGS (10)
  1. DIOVAN HCT [Concomitant]
     Active Substance: HYDROCHLOROTHIAZIDE\VALSARTAN
     Indication: HYPERTENSION
     Dosage: 1 DF, QD (160/12.5 MG), STOPPED 4 MONTHS AGO
     Route: 048
     Dates: start: 202002
  2. EXFORGE HCT [Suspect]
     Active Substance: AMLODIPINE BESYLATE\HYDROCHLOROTHIAZIDE\VALSARTAN
     Indication: HYPERTENSION
     Dosage: 1 DF, QD, STARTED 5 OR 6 MONTHS AGO
     Route: 048
     Dates: end: 20210326
  3. DIOVAN HCT [Concomitant]
     Active Substance: HYDROCHLOROTHIAZIDE\VALSARTAN
     Dosage: 1 DF, QD (320/25 MG)
     Route: 048
     Dates: start: 20210325
  4. TRAVATAN [Concomitant]
     Active Substance: TRAVOPROST
     Indication: OCULAR DISCOMFORT
  5. DUO?TRAVATAN [Concomitant]
     Active Substance: TIMOLOL MALEATE\TRAVOPROST
     Indication: GLAUCOMA
     Dosage: UNK UNK, QD (A DROP IN EACH EYE OF OPHTHALMIC SOLUTION IN MORNING STARTED LONG TIME AGO)
     Route: 031
  6. TIMOLOL MALEATE. [Concomitant]
     Active Substance: TIMOLOL MALEATE
     Indication: GLAUCOMA
     Dosage: UNK, QD (A DROP IN EACH EYE OF OPHTHALMIC SOLUTION IN MORNING STARTED LONG TIME AGO)
     Route: 031
  7. TIMOLOL MALEATE. [Concomitant]
     Active Substance: TIMOLOL MALEATE
     Indication: OCULAR DISCOMFORT
  8. DIOVAN [Concomitant]
     Active Substance: VALSARTAN
     Indication: HYPERTENSION
     Dosage: 1 DF, QD (160 MG), STARTED MORE THAN A YEAR AGO
     Route: 048
  9. TRAVATAN [Concomitant]
     Active Substance: TRAVOPROST
     Indication: GLAUCOMA
     Dosage: UNK, QD (A DROP IN EACH EYE OF OPHTHALMIC SOLUTION IN MORNING STARTED LONG TIME AGO) IN MORNING
     Route: 031
  10. DUO?TRAVATAN [Concomitant]
     Active Substance: TIMOLOL MALEATE\TRAVOPROST
     Indication: OCULAR DISCOMFORT

REACTIONS (5)
  - Arthralgia [Recovered/Resolved]
  - Erectile dysfunction [Recovered/Resolved]
  - Libido disorder [Recovered/Resolved]
  - Pruritus [Not Recovered/Not Resolved]
  - Peripheral swelling [Recovered/Resolved]
